FAERS Safety Report 9482271 (Version 1)
Quarter: 2013Q3

REPORT INFORMATION
  Report Type: Report from Study
  Country: PE (occurrence: PE)
  Receive Date: 20130828
  Receipt Date: 20130828
  Transmission Date: 20140515
  Serious: Yes (Other)
  Sender: FDA-Public Use
  Company Number: PE-ELI_LILLY_AND_COMPANY-PE201308008365

PATIENT
  Age: 20 Year
  Sex: Male

DRUGS (5)
  1. OLANZAPINE [Suspect]
     Dosage: 10 MG, UNKNOWN
     Dates: start: 20130505
  2. DICLOFENAC SODIUM [Concomitant]
     Dosage: UNK
  3. VITAMIN B1 [Concomitant]
  4. VITAMIN B12 [Concomitant]
  5. DOLO-NEUROBION                     /00194601/ [Concomitant]

REACTIONS (6)
  - Muscle contracture [Unknown]
  - Foaming at mouth [Unknown]
  - Hypothyroidism [Unknown]
  - Anxiety [Unknown]
  - Nervousness [Unknown]
  - Blood glucose increased [Unknown]
